FAERS Safety Report 6933697-2 (Version None)
Quarter: 2010Q3

REPORT INFORMATION
  Report Type: 
  Country: None (occurrence: None)
  Receive Date: 20100820
  Receipt Date: 20100813
  Transmission Date: 20110219
  Serious: Yes (Life-Threatening, Hospitalization, Other)
  Sender: FDA-Public Use
  Company Number: US-BAYER-201029238NA

PATIENT
  Age: 38 Year
  Sex: Male

DRUGS (1)
  1. MAGNEVIST [Suspect]
     Indication: NUCLEAR MAGNETIC RESONANCE IMAGING
     Dosage: AS USED: 14 ML  UNIT DOSE: 20 ML
     Route: 042
     Dates: start: 20100728, end: 20100728

REACTIONS (6)
  - ANAPHYLACTIC SHOCK [None]
  - CHEST PAIN [None]
  - DYSPNOEA [None]
  - RESPIRATORY ARREST [None]
  - SNEEZING [None]
  - VOMITING [None]
